FAERS Safety Report 25885839 (Version 1)
Quarter: 2025Q4

REPORT INFORMATION
  Report Type: Spontaneous
  Country: US (occurrence: US)
  Receive Date: 20251006
  Receipt Date: 20251006
  Transmission Date: 20260118
  Serious: Yes (Hospitalization, Other)
  Sender: HONG KONG KING-FRIEND INDUSTRIAL COMPANY LIMITED
  Company Number: US-HONGKONGKING-2025MPLIT00357

PATIENT
  Age: 36 Year
  Sex: Female

DRUGS (3)
  1. METHYLPREDNISOLONE ACETATE [Suspect]
     Active Substance: METHYLPREDNISOLONE ACETATE
     Indication: Cervical radiculopathy
     Route: 042
  2. METHYLPREDNISOLONE ACETATE [Suspect]
     Active Substance: METHYLPREDNISOLONE ACETATE
     Route: 008
  3. BUPIVACAINE [Concomitant]
     Active Substance: BUPIVACAINE
     Route: 065

REACTIONS (2)
  - Quadriplegia [Not Recovered/Not Resolved]
  - Product use issue [Unknown]
